FAERS Safety Report 7880290-3 (Version None)
Quarter: 2011Q4

REPORT INFORMATION
  Report Type: 
  Country: None (occurrence: None)
  Receive Date: 20111101
  Receipt Date: 20111025
  Transmission Date: 20120403
  Serious: No
  Sender: FDA-Public Use
  Company Number: US-PFIZER INC-2011260112

PATIENT
  Sex: Female

DRUGS (2)
  1. IBUPROFEN (ADVIL) [Suspect]
     Indication: PAIN
     Dosage: 200 MG, UNK
     Route: 048
  2. IBUPROFEN (ADVIL) [Suspect]
     Indication: PYREXIA

REACTIONS (7)
  - HYPERHIDROSIS [None]
  - ERYTHEMA [None]
  - JOINT SWELLING [None]
  - BLISTER [None]
  - MUSCULOSKELETAL STIFFNESS [None]
  - RASH [None]
  - HYPERSENSITIVITY [None]
